FAERS Safety Report 26213473 (Version 1)
Quarter: 2025Q4

REPORT INFORMATION
  Report Type: Spontaneous
  Country: US (occurrence: US)
  Receive Date: 20251230
  Receipt Date: 20251230
  Transmission Date: 20260118
  Serious: Yes (Other)
  Sender: BRISTOL-MYERS SQUIBB COMPANY
  Company Number: US-BRISTOL-MYERS SQUIBB COMPANY-2025-173578

PATIENT
  Age: 73 Year
  Sex: Female

DRUGS (1)
  1. NIVOLUMAB [Suspect]
     Active Substance: NIVOLUMAB
     Indication: Malignant melanoma
     Dosage: 11 CYCLES OF NIVOLUMAB
     Route: 042

REACTIONS (3)
  - Endocrine ophthalmopathy [Recovering/Resolving]
  - Adrenal insufficiency [Unknown]
  - Immune-mediated thyroiditis [Unknown]
